FAERS Safety Report 5355209-X (Version None)
Quarter: 2007Q2

REPORT INFORMATION
  Report Type: 
  Country: None (occurrence: None)
  Receive Date: 20070611
  Receipt Date: 20070525
  Transmission Date: 20071010
  Serious: Yes (Other)
  Sender: FDA-Public Use
  Company Number: 2007SP009293

PATIENT
  Age: 59 Year
  Sex: Male

DRUGS (2)
  1. TEMODAL [Suspect]
     Indication: ASTROCYTOMA
     Dosage: SEE IMAGE
     Dates: start: 20070227, end: 20070303
  2. TEMODAL [Suspect]
     Indication: ASTROCYTOMA
     Dosage: SEE IMAGE
     Dates: start: 20070314

REACTIONS (4)
  - ADVERSE EVENT [None]
  - FATIGUE [None]
  - HEPATIC ENZYME INCREASED [None]
  - LIVER DISORDER [None]
